FAERS Safety Report 7517427-1 (Version None)
Quarter: 2011Q2

REPORT INFORMATION
  Report Type: 
  Country: None (occurrence: None)
  Receive Date: 20110601
  Receipt Date: 20110526
  Transmission Date: 20111010
  Serious: Yes (Hospitalization, Congenital Anomaly, Other)
  Sender: FDA-Public Use
  Company Number: DE-PFIZER INC-2011116131

PATIENT
  Age: 26 Year
  Sex: Female
  Weight: 64 kg

DRUGS (10)
  1. FOLIC ACID [Concomitant]
     Dosage: UNK
     Route: 048
     Dates: start: 20081115, end: 20090815
  2. PREDNISOLONE [Suspect]
     Dosage: 5 MG/DAY DURING GESTATIONAL WEEK 14-16
     Route: 048
  3. PREDNISOLONE [Suspect]
     Indication: RHEUMATOID ARTHRITIS
     Dosage: 30 MG/DAY DURING GESTATIONAL WEEK 0-14
     Route: 048
  4. PREDNISOLONE [Suspect]
     Dosage: 15 MG/DAY DURING GESTATIONAL WEEK 20-22
     Route: 048
  5. PREDNISOLONE [Suspect]
     Dosage: 10 MG/DAY DURING GESTATIONAL WEEK 16-20
     Route: 048
  6. VOLTAREN [Suspect]
     Indication: RHEUMATOID ARTHRITIS
     Dosage: 140 MG, 2X/DAY DURING GESTATIONAL WEEK 0-27
     Route: 048
  7. HUMIRA [Concomitant]
     Indication: RHEUMATOID ARTHRITIS
     Dosage: 40 MG, PRECONCEPTIONAL
     Route: 058
  8. IBUPROFEN [Suspect]
     Indication: RHEUMATOID ARTHRITIS
     Dosage: 600 MG/DAY DURING GESTATIONAL WEEK 16-22
     Route: 048
  9. PREDNISOLONE [Suspect]
     Dosage: 20 MG/DAY DURING GESTATIONAL WEEK 27-35
     Route: 048
  10. PARACETAMOL [Concomitant]
     Dosage: 1500 UP TO 3000 MG/DAY DURING GESTATIONAL WEEK 27-35
     Route: 048

REACTIONS (3)
  - PREMATURE BABY [None]
  - MATERNAL DRUGS AFFECTING FOETUS [None]
  - DRUG EXPOSURE DURING PREGNANCY [None]
